FAERS Safety Report 7070178-2 (Version None)
Quarter: 2010Q4

REPORT INFORMATION
  Report Type: 
  Country: None (occurrence: None)
  Receive Date: 20101028
  Receipt Date: 20091201
  Transmission Date: 20110411
  Serious: No
  Sender: FDA-Public Use
  Company Number: US-WYE-H17667010

PATIENT
  Age: 80 Year
  Sex: Male

DRUGS (2)
  1. AMIODARONE [Suspect]
     Dosage: UNSPECIFIED
  2. AMIODARONE [Suspect]
     Dosage: UNSPECIFIED

REACTIONS (1)
  - THYROID DISORDER [None]
